FAERS Safety Report 11450533 (Version 1)
Quarter: 2015Q3

REPORT INFORMATION
  Report Type: Spontaneous
  Country: US (occurrence: US)
  Receive Date: 20150903
  Receipt Date: 20150903
  Transmission Date: 20151125
  Serious: No
  Sender: FDA-Public Use
  Company Number: US-ROCHE-1042377

PATIENT
  Sex: Female

DRUGS (3)
  1. PEGASYS [Suspect]
     Active Substance: PEGINTERFERON ALFA-2A
     Indication: HEPATITIS C
     Route: 065
     Dates: start: 20120120
  2. RIBAVIRIN. [Suspect]
     Active Substance: RIBAVIRIN
     Indication: HEPATITIS C
     Route: 065
     Dates: start: 20120120
  3. INCIVEK [Suspect]
     Active Substance: TELAPREVIR
     Indication: HEPATITIS C
     Route: 065
     Dates: start: 20120120

REACTIONS (8)
  - Dyspnoea [Unknown]
  - Rhinalgia [Unknown]
  - Viral infection [Unknown]
  - Pruritus generalised [Unknown]
  - Nasal mucosal disorder [Unknown]
  - Insomnia [Recovered/Resolved]
  - Oropharyngeal pain [Unknown]
  - Nasal inflammation [Unknown]
